FAERS Safety Report 24726376 (Version 1)
Quarter: 2024Q4

REPORT INFORMATION
  Report Type: Spontaneous
  Country: AU (occurrence: AU)
  Receive Date: 20241212
  Receipt Date: 20241212
  Transmission Date: 20250115
  Serious: Yes (Hospitalization, Other)
  Sender: RANBAXY
  Company Number: AU-SUN PHARMACEUTICAL INDUSTRIES LTD-2024R1-482908

PATIENT
  Age: 78 Year
  Sex: Female

DRUGS (19)
  1. DOXORUBICIN [Suspect]
     Active Substance: DOXORUBICIN
     Indication: Diffuse large B-cell lymphoma
     Dosage: 93.5 MILLIGRAM, 1 DOSE/3 WEEKS
     Route: 042
     Dates: start: 20240510, end: 20240823
  2. PREDNISONE [Suspect]
     Active Substance: PREDNISONE
     Indication: Diffuse large B-cell lymphoma
     Dosage: 100 MILLIGRAM, DAILY
     Route: 048
     Dates: start: 20240510, end: 20240827
  3. VINCRISTINE [Suspect]
     Active Substance: VINCRISTINE
     Indication: Diffuse large B-cell lymphoma
     Dosage: 2 MILLIGRAM, 1 DOSE/3 WEEKS
     Route: 042
     Dates: start: 20240510, end: 20240823
  4. CYCLOPHOSPHAMIDE [Suspect]
     Active Substance: CYCLOPHOSPHAMIDE
     Indication: Diffuse large B-cell lymphoma
     Dosage: 1402.5 MILLIGRAM, 1 DOSE/3 WEEKS
     Route: 042
  5. EPCORITAMAB [Suspect]
     Active Substance: EPCORITAMAB
     Indication: Diffuse large B-cell lymphoma
     Dosage: 48 MILLIGRAM, 1 DOSE/3 WEEKS
     Route: 058
     Dates: start: 20240510
  6. RITUXIMAB [Suspect]
     Active Substance: RITUXIMAB
     Indication: Diffuse large B-cell lymphoma
     Dosage: 701.25 MILLIGRAM, 1 DOSE/3 WEEKS
     Route: 042
     Dates: start: 20240510, end: 20240823
  7. CELEBREX [Concomitant]
     Active Substance: CELECOXIB
     Indication: Analgesic intervention supportive therapy
     Dosage: 100 MILLIGRAM
     Route: 048
     Dates: start: 20240510
  8. ENOXAPARIN SODIUM [Concomitant]
     Active Substance: ENOXAPARIN SODIUM
     Indication: Anticoagulant therapy
     Dosage: UNK, DAILY
     Route: 058
     Dates: start: 20240503
  9. MOVICOL [Concomitant]
     Active Substance: POLYETHYLENE GLYCOL 3350\POTASSIUM CHLORIDE\SODIUM BICARBONATE\SODIUM CHLORIDE
     Indication: Constipation
     Dosage: UNK
     Route: 048
     Dates: start: 20240503
  10. ALLOPURINOL [Concomitant]
     Active Substance: ALLOPURINOL
     Indication: Prophylaxis
     Dosage: 300 MILLIGRAM, DAILY
     Route: 048
     Dates: start: 20240504
  11. BETAMETHASONE DIPROPIONATE [Concomitant]
     Active Substance: BETAMETHASONE DIPROPIONATE
     Indication: Dermatitis
     Dosage: 0.05 PERCENT
     Route: 061
     Dates: start: 20240705
  12. BISOPROLOL FUMARATE [Concomitant]
     Active Substance: BISOPROLOL FUMARATE
     Indication: Hypertension
     Dosage: 2.5 MILLIGRAM, DAILY
     Route: 048
     Dates: start: 20240503
  13. LORATADINE [Concomitant]
     Active Substance: LORATADINE
     Indication: Antiallergic therapy
     Dosage: 10 MILLIGRAM, 1 DOSE/3 WEEKS
     Route: 048
     Dates: start: 20240510
  14. PALONOSETRON [Concomitant]
     Active Substance: PALONOSETRON
     Indication: Prophylaxis of nausea and vomiting
     Dosage: 250 MILLIGRAM, 1 DOSE/3 WEEKS
     Route: 048
     Dates: start: 20240510
  15. PANTOPRAZOLE SODIUM [Concomitant]
     Active Substance: PANTOPRAZOLE SODIUM
     Indication: Gastrooesophageal reflux disease
     Dosage: 40 MILLIGRAM, DAILY
     Route: 048
     Dates: start: 20240504
  16. ACETAMINOPHEN [Concomitant]
     Active Substance: ACETAMINOPHEN
     Indication: Antipyresis
     Dosage: 1000 MILLIGRAM, 1 DOSE/3 WEEKS
     Route: 048
     Dates: start: 20240510
  17. PREGABALIN [Concomitant]
     Active Substance: PREGABALIN
     Indication: Cauda equina syndrome
     Dosage: 75 MILLIGRAM, DAILY
     Route: 048
     Dates: start: 20240616
  18. TAPENTADOL [Concomitant]
     Active Substance: TAPENTADOL
     Indication: Analgesic therapy
     Dosage: UNK
     Route: 048
     Dates: start: 20240507
  19. TEMAZEPAM [Concomitant]
     Active Substance: TEMAZEPAM
     Indication: Insomnia
     Dosage: UNK
     Route: 048
     Dates: start: 20240506

REACTIONS (1)
  - Febrile neutropenia [Recovered/Resolved]

NARRATIVE: CASE EVENT DATE: 20240902
